FAERS Safety Report 11275356 (Version 1)
Quarter: 2015Q3

REPORT INFORMATION
  Report Type: Spontaneous
  Country: US (occurrence: None)
  Receive Date: 20150715
  Receipt Date: 20150715
  Transmission Date: 20151125
  Serious: Yes (Other)
  Sender: FDA-Public Use
  Company Number: None

PATIENT
  Age: 53 Year
  Sex: Female

DRUGS (1)
  1. IBRANCE [Suspect]
     Active Substance: PALBOCICLIB
     Route: 048
     Dates: start: 20150620

REACTIONS (4)
  - Full blood count decreased [None]
  - Epistaxis [None]
  - Nasopharyngitis [None]
  - Contusion [None]

NARRATIVE: CASE EVENT DATE: 20150709
